FAERS Safety Report 8170117-7 (Version None)
Quarter: 2012Q1

REPORT INFORMATION
  Report Type: 
  Country: None (occurrence: None)
  Receive Date: 20120228
  Receipt Date: 20120215
  Transmission Date: 20120608
  Serious: Yes (Other)
  Sender: FDA-Public Use
  Company Number: PHEH2009US07548

PATIENT
  Sex: Female

DRUGS (14)
  1. VICODIN ES [Concomitant]
  2. PERIDEX [Concomitant]
  3. ATENOLOL [Concomitant]
  4. DEXEDRINE [Concomitant]
  5. CLINDAMYCIN [Concomitant]
     Dosage: 300 MG, QID
  6. AREDIA [Suspect]
  7. ZOLOFT [Concomitant]
  8. ZOMETA [Suspect]
     Dosage: 4 MG,
     Route: 042
  9. INTERFERON [Concomitant]
  10. LIPITOR [Concomitant]
  11. ASPIRIN [Concomitant]
  12. PERCOCET [Concomitant]
  13. ZANTAC [Concomitant]
  14. ZOLOFT [Concomitant]

REACTIONS (28)
  - RENAL FAILURE [None]
  - OSTEOMYELITIS [None]
  - PAIN IN JAW [None]
  - DEAFNESS NEUROSENSORY [None]
  - HYPERLIPIDAEMIA [None]
  - VERTIGO [None]
  - MULTIPLE MYELOMA [None]
  - METASTASES TO BONE [None]
  - GENERAL PHYSICAL HEALTH DETERIORATION [None]
  - RIB FRACTURE [None]
  - HYPERTENSION [None]
  - EUSTACHIAN TUBE DYSFUNCTION [None]
  - SINUS BRADYCARDIA [None]
  - TINNITUS [None]
  - PAIN [None]
  - FALL [None]
  - INTERVERTEBRAL DISC DEGENERATION [None]
  - IMMUNODEFICIENCY [None]
  - NAUSEA [None]
  - EXPOSED BONE IN JAW [None]
  - DEPRESSION [None]
  - CERUMEN IMPACTION [None]
  - OSTEONECROSIS OF JAW [None]
  - ANXIETY [None]
  - ANHEDONIA [None]
  - CEREBROVASCULAR ACCIDENT [None]
  - RADIUS FRACTURE [None]
  - BLOOD CHOLESTEROL INCREASED [None]
